FAERS Safety Report 13585836 (Version 1)
Quarter: 2017Q2

REPORT INFORMATION
  Report Type: Spontaneous
  Country: FR (occurrence: FR)
  Receive Date: 20170526
  Receipt Date: 20170526
  Transmission Date: 20170830
  Serious: Yes (Death, Other)
  Sender: FDA-Public Use
  Company Number: FR-ASTRAZENECA-2017SE54989

PATIENT
  Age: 32059 Day
  Sex: Female

DRUGS (11)
  1. ALDACTONE [Suspect]
     Active Substance: SPIRONOLACTONE
     Indication: HYPERTENSION
     Route: 048
     Dates: start: 20170328, end: 20170424
  2. MOPRAL [Suspect]
     Active Substance: OMEPRAZOLE SODIUM
     Indication: GASTROOESOPHAGEAL REFLUX DISEASE
     Route: 048
     Dates: start: 2015, end: 20170424
  3. CACIT VITAMINE D3 [Suspect]
     Active Substance: CALCIUM CARBONATE\CHOLECALCIFEROL
     Indication: HYPOCALCAEMIA
     Route: 048
     Dates: end: 20170424
  4. SPECIAFOLDINE [Concomitant]
     Active Substance: FOLIC ACID
  5. CHOLECALCIFEROL [Concomitant]
     Active Substance: CHOLECALCIFEROL
  6. INEGY [Suspect]
     Active Substance: EZETIMIBE\SIMVASTATIN
     Indication: HYPERCHOLESTEROLAEMIA
     Dosage: 10 MG / 20 MG ONE DOSING FORM EVERY DAY
     Route: 048
     Dates: start: 2015, end: 20170424
  7. REFRESH [Suspect]
     Active Substance: UNSPECIFIED INGREDIENT
     Indication: DRY EYE
     Route: 047
     Dates: end: 20170424
  8. OXYBUTYNIN [Suspect]
     Active Substance: OXYBUTYNIN
     Indication: CERVICAL INCOMPETENCE
     Route: 048
     Dates: start: 201602, end: 20170424
  9. COVERSYL [Suspect]
     Active Substance: PERINDOPRIL
     Indication: HYPERTENSION
     Route: 048
     Dates: start: 201703, end: 20170424
  10. KARDEGIC [Suspect]
     Active Substance: ASPIRIN LYSINE
     Indication: PROPHYLAXIS
     Route: 048
     Dates: start: 2015, end: 20170426
  11. TARDYFERON [Concomitant]
     Active Substance: FERROUS SULFATE

REACTIONS (4)
  - Haematoma [Fatal]
  - Fall [Fatal]
  - Altered state of consciousness [Fatal]
  - Hyponatraemia [Recovered/Resolved]

NARRATIVE: CASE EVENT DATE: 20170420
